FAERS Safety Report 17600345 (Version 1)
Quarter: 2020Q1

REPORT INFORMATION
  Report Type: Spontaneous
  Country: AU (occurrence: AU)
  Receive Date: 20200330
  Receipt Date: 20200330
  Transmission Date: 20200409
  Serious: Yes (Other)
  Sender: FDA-Public Use
  Company Number: AU-SA-2020SA072438

PATIENT
  Age: 39 Year
  Sex: Female

DRUGS (8)
  1. ONDANSETRON [Suspect]
     Active Substance: ONDANSETRON
     Dosage: UNK
  2. FENTANYL. [Interacting]
     Active Substance: FENTANYL
     Dosage: UNK
  3. CEPHAZOLIN [CEFAZOLIN SODIUM] [Suspect]
     Active Substance: CEFAZOLIN SODIUM
     Dosage: UNK
  4. DEXAMETHASONE. [Suspect]
     Active Substance: DEXAMETHASONE
     Dosage: UNK
  5. LIDOCAINE. [Suspect]
     Active Substance: LIDOCAINE
     Dosage: UNK
  6. PARECOXIB [Suspect]
     Active Substance: PARECOXIB
     Dosage: UNK
  7. CLEXANE [Suspect]
     Active Substance: ENOXAPARIN SODIUM
     Dosage: UNK
  8. PROPOFOL-LIPURO 1% [Interacting]
     Active Substance: PROPOFOL
     Dosage: UNK

REACTIONS (2)
  - Type I hypersensitivity [Unknown]
  - Cardiac arrest [Recovered/Resolved]

NARRATIVE: CASE EVENT DATE: 20190303
